FAERS Safety Report 7755253-9 (Version None)
Quarter: 2011Q3

REPORT INFORMATION
  Report Type: 
  Country: None (occurrence: None)
  Receive Date: 20110913
  Receipt Date: 20110907
  Transmission Date: 20111222
  Serious: Yes (Hospitalization, Disabling, Other)
  Sender: FDA-Public Use
  Company Number: 2008-176508-NL

PATIENT
  Age: 25 Year
  Sex: Female
  Weight: 59.8748 kg

DRUGS (1)
  1. NUVARING [Suspect]
     Indication: CONTRACEPTION
     Dosage: 1 DF
     Dates: start: 20071001, end: 20080301

REACTIONS (6)
  - HYPERCOAGULATION [None]
  - FALL [None]
  - MAY-THURNER SYNDROME [None]
  - DEEP VEIN THROMBOSIS [None]
  - CATHETER SITE HAEMORRHAGE [None]
  - HEAD INJURY [None]
